FAERS Safety Report 5913470-4 (Version None)
Quarter: 2008Q4

REPORT INFORMATION
  Report Type: 
  Country: None (occurrence: None)
  Receive Date: 20081008
  Receipt Date: 20081008
  Transmission Date: 20090506
  Serious: Yes (Other)
  Sender: FDA-Public Use
  Company Number: None

PATIENT
  Age: 91 Year
  Sex: Female
  Weight: 38.5557 kg

DRUGS (2)
  1. FENTANYL [Suspect]
     Indication: CARDIOVASCULAR DISORDER
     Dosage: 12.5 PATCH EVERY 3 DAYS
     Dates: start: 20080906, end: 20080907
  2. FENTANYL [Suspect]
     Indication: GANGRENE
     Dosage: 12.5 PATCH EVERY 3 DAYS
     Dates: start: 20080906, end: 20080907

REACTIONS (3)
  - ABNORMAL BEHAVIOUR [None]
  - AGGRESSION [None]
  - INSOMNIA [None]
